FAERS Safety Report 9739559 (Version 1)
Quarter: 2013Q4

REPORT INFORMATION
  Report Type: Spontaneous
  Country: US (occurrence: US)
  Receive Date: 20131209
  Receipt Date: 20131209
  Transmission Date: 20140711
  Serious: No
  Sender: FDA-Public Use
  Company Number: US-009507513-1312USA003039

PATIENT
  Sex: 0

DRUGS (2)
  1. NEXPLANON [Suspect]
     Dosage: 68MG 1 STANDARD PACKAGE OF PF APPLI OF 1
     Route: 059
     Dates: start: 2010, end: 20131203
  2. NEXPLANON [Suspect]
     Dosage: 68MG 1 STANDARD PACKAGE OF PF APPLI OF 1

REACTIONS (3)
  - Drug dose omission [Unknown]
  - Product quality issue [Unknown]
  - No adverse event [Unknown]
